FAERS Safety Report 9817289 (Version 7)
Quarter: 2014Q2

REPORT INFORMATION
  Report Type: Report from Study
  Country: AR (occurrence: AR)
  Receive Date: 20140115
  Receipt Date: 20140627
  Transmission Date: 20141212
  Serious: Yes (Other)
  Sender: FDA-Public Use
  Company Number: AR-ROCHE-1333325

PATIENT
  Sex: Male

DRUGS (2)
  1. RANIBIZUMAB [Suspect]
     Indication: EYE HAEMORRHAGE
     Dosage: THE PATIENT RECEIVED TOTAL 3 APPLICATIONS OF RANIBIZUMAB PER MONTH IN RIGHT EYE IN AUG/2013, SEP/201
     Route: 050
  2. RANIBIZUMAB [Suspect]
     Indication: MACULOPATHY

REACTIONS (6)
  - Vascular rupture [Recovering/Resolving]
  - Visual impairment [Not Recovered/Not Resolved]
  - No therapeutic response [Unknown]
  - Nervousness [Not Recovered/Not Resolved]
  - Anxiety [Recovering/Resolving]
  - Eye disorder [Unknown]
